FAERS Safety Report 8017367 (Version 4)
Quarter: 2020Q2

REPORT INFORMATION
  Report Type: Spontaneous
  Country: GR (occurrence: GR)
  Receive Date: 20110630
  Receipt Date: 20200630
  Transmission Date: 20200714
  Serious: Yes (Hospitalization, Other)
  Sender: FDA-Public Use
  Company Number: GR-PFIZER INC-2011140931

PATIENT
  Age: 60 Year
  Sex: Male

DRUGS (4)
  1. CLINDAMYCIN HCL [Suspect]
     Active Substance: CLINDAMYCIN HYDROCHLORIDE
     Indication: SOFT TISSUE INFECTION
     Dosage: UNK
     Route: 048
  2. CLINDAMYCIN HCL [Suspect]
     Active Substance: CLINDAMYCIN HYDROCHLORIDE
     Indication: OSTEOMYELITIS
  3. AMOXICILLIN. [Suspect]
     Active Substance: AMOXICILLIN
     Indication: SOFT TISSUE INFECTION
     Dosage: UNK
     Route: 048
  4. AMOXICILLIN. [Suspect]
     Active Substance: AMOXICILLIN
     Indication: OSTEOMYELITIS

REACTIONS (2)
  - Pseudomembranous colitis [Recovered/Resolved]
  - Ascites [Recovered/Resolved]
